FAERS Safety Report 18556806 (Version 1)
Quarter: 2020Q4

REPORT INFORMATION
  Report Type: Report from Study
  Country: CA (occurrence: CA)
  Receive Date: 20201128
  Receipt Date: 20201128
  Transmission Date: 20210114
  Serious: Yes (Death)
  Sender: FDA-Public Use
  Company Number: PHHY2014CA059877

PATIENT
  Age: 68 Year
  Sex: Male

DRUGS (1)
  1. EXJADE [Suspect]
     Active Substance: DEFERASIROX
     Indication: MYELOFIBROSIS
     Dosage: 500 MG, QD
     Route: 065
     Dates: start: 20131102

REACTIONS (2)
  - Death [Fatal]
  - Therapy non-responder [Unknown]

NARRATIVE: CASE EVENT DATE: 20160915
